FAERS Safety Report 20347197 (Version 3)
Quarter: 2022Q4

REPORT INFORMATION
  Report Type: Report from Study
  Country: US (occurrence: US)
  Receive Date: 20220118
  Receipt Date: 20221109
  Transmission Date: 20230113
  Serious: Yes (Hospitalization)
  Sender: FDA-Public Use
  Company Number: US-GLAXOSMITHKLINE-GB2022GSK005439

PATIENT
  Age: 27 Year
  Sex: Female
  Weight: 61.235 kg

DRUGS (17)
  1. PACLITAXEL [Suspect]
     Active Substance: PACLITAXEL
     Indication: Breast cancer
     Dosage: 15/360 MG QD 3 DAYS A WEEK); PACLITAXEL (360 MG QD 3 DAYS A WEEK)
     Route: 048
     Dates: start: 20211011, end: 20211220
  2. DOSTARLIMAB [Suspect]
     Active Substance: DOSTARLIMAB
     Indication: Breast cancer
     Dosage: 500 MG, Z (Q3WKS)
     Route: 042
     Dates: start: 20211011, end: 20211011
  3. DOSTARLIMAB [Suspect]
     Active Substance: DOSTARLIMAB
     Dosage: 500 MG, Z  (Q3WKS)
     Route: 042
     Dates: start: 20211220, end: 20211220
  4. CARBOPLATIN [Suspect]
     Active Substance: CARBOPLATIN
     Indication: Breast cancer
     Dosage: 300 MG (ADDED ON)
     Route: 042
     Dates: start: 20211220, end: 20211220
  5. DOXORUBICIN [Suspect]
     Active Substance: DOXORUBICIN
     Indication: Breast cancer
     Dosage: 100 MG, Z (Q2 WKS)
     Route: 042
     Dates: start: 20211227, end: 20211227
  6. CYCLOPHOSPHAMIDE [Suspect]
     Active Substance: CYCLOPHOSPHAMIDE
     Indication: Breast cancer
     Dosage: 996 MG, Z (Q2WKS)
     Route: 042
     Dates: start: 20211227, end: 20211227
  7. OMEPRAZOLE [Concomitant]
     Active Substance: OMEPRAZOLE
     Indication: Product used for unknown indication
     Dosage: 40 MG, QD
     Route: 048
  8. NORCO [Concomitant]
     Active Substance: ACETAMINOPHEN\HYDROCODONE BITARTRATE
     Indication: Pain
     Dosage: 10 MG, Z-PRN (EVERY 6 HR)
     Route: 048
  9. AUGMENTIN [Concomitant]
     Active Substance: AMOXICILLIN\CLAVULANATE POTASSIUM
     Indication: Product used for unknown indication
     Dosage: 500/125 MG, TID WITH MEALS
     Route: 048
  10. PROCHLORPERAZINE [Concomitant]
     Active Substance: PROCHLORPERAZINE
     Indication: Nausea
     Dosage: 10 MG, Z-PRN (EVERY 6 HR)
     Route: 048
  11. PROCHLORPERAZINE [Concomitant]
     Active Substance: PROCHLORPERAZINE
     Indication: Vomiting
  12. PROMETHAZINE [Concomitant]
     Active Substance: PROMETHAZINE HYDROCHLORIDE
     Indication: Nausea
     Dosage: 12.5 MG, Z- PRN (EVERY 4 HR)
     Route: 048
  13. PROMETHAZINE [Concomitant]
     Active Substance: PROMETHAZINE HYDROCHLORIDE
     Indication: Vomiting
  14. NYSTATIN [Concomitant]
     Active Substance: NYSTATIN
     Indication: Stomatitis
     Dosage: 5 ML, QID
     Route: 048
     Dates: start: 20211115
  15. MAGIC MOUTHWASH (AL OH +DIPHENHYDRAMINE + LIDOCAINE + MG OH) [Concomitant]
     Indication: Stomatitis
     Dosage: 15 ML, QID
     Dates: start: 20211115
  16. LIDOCAINE [Concomitant]
     Active Substance: LIDOCAINE
     Indication: Haemorrhoids
     Dosage: UNK, TID
     Route: 061
     Dates: start: 20211213
  17. ENCEQUIDAR MESYLATE MONOHYDRATE [Suspect]
     Active Substance: ENCEQUIDAR MESYLATE MONOHYDRATE

REACTIONS (1)
  - Sepsis [Recovered/Resolved]

NARRATIVE: CASE EVENT DATE: 20220109
